FAERS Safety Report 6554939-1 (Version None)
Quarter: 2010Q1

REPORT INFORMATION
  Report Type: 
  Country: None (occurrence: None)
  Receive Date: 20100126
  Receipt Date: 20100113
  Transmission Date: 20100710
  Serious: Yes (Other)
  Sender: FDA-Public Use
  Company Number: LEO-2010-00018

PATIENT
  Age: 54 Year
  Sex: Female

DRUGS (1)
  1. TACLONEX SCALP [Suspect]
     Indication: PSORIASIS
     Dosage: (1 IN 1 D)
     Dates: start: 20091130, end: 20091215

REACTIONS (1)
  - HYPERSENSITIVITY [None]
